FAERS Safety Report 17113299 (Version 2)
Quarter: 2020Q1

REPORT INFORMATION
  Report Type: Spontaneous
  Country: JP (occurrence: JP)
  Receive Date: 20191204
  Receipt Date: 20200228
  Transmission Date: 20200409
  Serious: Yes (Other)
  Sender: FDA-Public Use
  Company Number: JP-AMGEN-JPNSP2019200643

PATIENT
  Age: 63 Year
  Sex: Female

DRUGS (8)
  1. EMEND [Concomitant]
     Active Substance: APREPITANT
     Indication: PRODUCT USED FOR UNKNOWN INDICATION
     Dosage: 120 MILLIGRAM (THREE DOSES)
     Route: 048
     Dates: start: 20190207, end: 20190322
  2. EMEND [Concomitant]
     Active Substance: APREPITANT
     Dosage: 80 MILLIGRAM (THREE DOSES)
     Route: 048
     Dates: start: 20190207, end: 20190322
  3. EPIRUBICIN HYDROCHLORIDE. [Concomitant]
     Active Substance: EPIRUBICIN HYDROCHLORIDE
     Indication: BREAST CANCER
     Dosage: 90 MILLIGRAM/SQ. METER (FOUR DOSES)
     Route: 042
     Dates: start: 20190202, end: 20190322
  4. ENDOXAN [CYCLOPHOSPHAMIDE] [Concomitant]
     Active Substance: CYCLOPHOSPHAMIDE
     Indication: BREAST CANCER
     Dosage: 600 MILLIEQUIVALENT PER SQUARE METRE (FOUR DOSES)
     Route: 042
     Dates: start: 20190202, end: 20190322
  5. GASTER [Concomitant]
     Active Substance: FAMOTIDINE
     Indication: PRODUCT USED FOR UNKNOWN INDICATION
     Dosage: 10 MILLIGRAM (TWO DOSES)
     Route: 048
     Dates: start: 20190207, end: 20190322
  6. G-LASTA [Suspect]
     Active Substance: PEGFILGRASTIM
     Indication: COLONY STIMULATING FACTOR THERAPY
     Dosage: 3.6 MILLIGRAM
     Route: 058
  7. PACLITAXEL. [Concomitant]
     Active Substance: PACLITAXEL
     Indication: BREAST CANCER
     Dosage: 80 MILLIGRAM/SQ. METER(FIVE DOSES)
     Route: 042
     Dates: start: 20190405
  8. DECADRON [Concomitant]
     Active Substance: DEXAMETHASONE
     Indication: PRODUCT USED FOR UNKNOWN INDICATION
     Dosage: 4 MILLIGRAM (TWO DOSES)
     Route: 048
     Dates: start: 20190207, end: 20190322

REACTIONS (1)
  - Interstitial lung disease [Recovered/Resolved]

NARRATIVE: CASE EVENT DATE: 20190510
